FAERS Safety Report 10026794 (Version 2)
Quarter: 2014Q2

REPORT INFORMATION
  Report Type: Spontaneous
  Country: US (occurrence: US)
  Receive Date: 20140321
  Receipt Date: 20140502
  Transmission Date: 20141212
  Serious: No
  Sender: FDA-Public Use
  Company Number: US-009507513-1403USA004870

PATIENT
  Sex: Male

DRUGS (3)
  1. PEGINTRON [Suspect]
     Indication: HEPATITIS C
     Dosage: REDIPEN, 0.5ML, Q7DAYS
     Route: 058
     Dates: start: 20140307
  2. REBETOL [Suspect]
     Indication: HEPATITIS C
     Dosage: 400 MG, B.I.D. (TWICE A DAY)
     Route: 048
     Dates: start: 20140307
  3. ZANTAC [Concomitant]
     Dosage: UNK

REACTIONS (7)
  - Eating disorder [Unknown]
  - Back pain [Recovered/Resolved]
  - Chest discomfort [Unknown]
  - Influenza like illness [Unknown]
  - Dyspnoea [Unknown]
  - Weight decreased [Unknown]
  - Malaise [Unknown]
